FAERS Safety Report 26207157 (Version 1)
Quarter: 2025Q4

REPORT INFORMATION
  Report Type: Spontaneous
  Country: EU (occurrence: EU)
  Receive Date: 20251229
  Receipt Date: 20251229
  Transmission Date: 20260117
  Serious: Yes (Other)
  Sender: AUROBINDO
  Company Number: EU-URPL-DML-MLP.4401.1.2573.2022

PATIENT
  Age: 23 Year
  Sex: Male
  Weight: 95 kg

DRUGS (1)
  1. ACETAMINOPHEN [Suspect]
     Active Substance: ACETAMINOPHEN
     Indication: Product used for unknown indication
     Dosage: DOSE: 50 TABLETS OF 500 MG
     Route: 061
     Dates: start: 20220209, end: 20220209

REACTIONS (2)
  - Intentional self-injury [Recovering/Resolving]
  - Suicide attempt [Recovering/Resolving]
